FAERS Safety Report 5097892-2 (Version None)
Quarter: 2006Q3

REPORT INFORMATION
  Report Type: 
  Country: None (occurrence: None)
  Receive Date: 20060905
  Receipt Date: 20060905
  Transmission Date: 20061208
  Serious: Yes (Hospitalization)
  Sender: FDA-Public Use
  Company Number: None

PATIENT
  Age: 71 Year
  Sex: Male

DRUGS (4)
  1. BACTRIM DS [Suspect]
     Indication: EPIDIDYMITIS
     Dosage: ONE TWICE DAILY PO
     Route: 048
     Dates: start: 20050703, end: 20060721
  2. ASPIRIN [Concomitant]
  3. SIMVASTATIN [Concomitant]
  4. FELODIPINE [Concomitant]

REACTIONS (1)
  - RASH PRURITIC [None]
